APPROVED DRUG PRODUCT: OFLOXACIN
Active Ingredient: OFLOXACIN
Strength: 0.3%
Dosage Form/Route: SOLUTION/DROPS;OPHTHALMIC
Application: A211524 | Product #001
Applicant: AMNEAL EU LTD
Approved: Mar 1, 2024 | RLD: No | RS: No | Type: DISCN